FAERS Safety Report 12223635 (Version 1)
Quarter: 2016Q1

REPORT INFORMATION
  Report Type: Spontaneous
  Country: US (occurrence: US)
  Receive Date: 20160330
  Receipt Date: 20160330
  Transmission Date: 20160526
  Serious: Yes (Hospitalization)
  Sender: FDA-Public Use
  Company Number: US-RARE DISEASE THERAPEUTICS, INC.-1049975

PATIENT
  Age: 11 Year
  Sex: Female

DRUGS (7)
  1. ONFI [Concomitant]
     Active Substance: CLOBAZAM
  2. TEGRETOL [Concomitant]
     Active Substance: CARBAMAZEPINE
  3. NEXIUM [Concomitant]
     Active Substance: ESOMEPRAZOLE MAGNESIUM
  4. KEPPRA [Concomitant]
     Active Substance: LEVETIRACETAM
  5. CYSTADANE [Suspect]
     Active Substance: BETAINE
     Indication: HOMOCYSTINURIA
     Route: 048
     Dates: start: 20140704
  6. VITAMIN B12 [Concomitant]
     Active Substance: CYANOCOBALAMIN
  7. CARNITOR [Concomitant]
     Active Substance: LEVOCARNITINE

REACTIONS (3)
  - Diarrhoea [Unknown]
  - Pneumonia [None]
  - Underdose [Unknown]

NARRATIVE: CASE EVENT DATE: 20160229
